FAERS Safety Report 21362352 (Version 1)
Quarter: 2022Q3

REPORT INFORMATION
  Report Type: Spontaneous
  Country: US (occurrence: US)
  Receive Date: 20220922
  Receipt Date: 20220922
  Transmission Date: 20221027
  Serious: No
  Sender: FDA-Public Use
  Company Number: US-BRISTOL-MYERS SQUIBB COMPANY-2022-109340

PATIENT
  Age: 73 Year
  Sex: Male

DRUGS (1)
  1. REVLIMID [Suspect]
     Active Substance: LENALIDOMIDE
     Indication: Plasma cell myeloma
     Dosage: QD X 21 DAYS THEN OFF FOR 7 DAYS
     Route: 048
     Dates: start: 20210122

REACTIONS (4)
  - Skin exfoliation [Unknown]
  - Skin indentation [Unknown]
  - Nail discolouration [Unknown]
  - Nail pitting [Unknown]
